FAERS Safety Report 5588253-8 (Version None)
Quarter: 2008Q1

REPORT INFORMATION
  Report Type: 
  Country: None (occurrence: None)
  Receive Date: 20080108
  Receipt Date: 20071227
  Transmission Date: 20080703
  Serious: Yes (Hospitalization)
  Sender: FDA-Public Use
  Company Number: 2007BI013282

PATIENT
  Age: 30 Year
  Sex: Female

DRUGS (1)
  1. TYSABRI [Suspect]
     Indication: RELAPSING-REMITTING MULTIPLE SCLEROSIS
     Dosage: 300 MG; QW; IV
     Route: 042
     Dates: start: 20061220, end: 20070501

REACTIONS (8)
  - DRUG INTOLERANCE [None]
  - FATIGUE [None]
  - HEADACHE [None]
  - INFECTION IN AN IMMUNOCOMPROMISED HOST [None]
  - OPPORTUNISTIC INFECTION [None]
  - PNEUMONIA [None]
  - STAPHYLOCOCCAL SEPSIS [None]
  - URGE INCONTINENCE [None]
